FAERS Safety Report 23029192 (Version 2)
Quarter: 2023Q4

REPORT INFORMATION
  Report Type: Report from Study
  Country: BR (occurrence: BR)
  Receive Date: 20231004
  Receipt Date: 20231130
  Transmission Date: 20240110
  Serious: Yes (Hospitalization, Other)
  Sender: FDA-Public Use
  Company Number: BR-002147023-NVSC2023BR158145

PATIENT
  Sex: Female
  Weight: 78 kg

DRUGS (8)
  1. KISQALI [Suspect]
     Active Substance: RIBOCICLIB
     Indication: Breast cancer
     Dosage: 3 DOSAGE FORM (IN THE MORNING)
     Route: 048
     Dates: start: 202307
  2. KISQALI [Suspect]
     Active Substance: RIBOCICLIB
     Dosage: UNK
     Route: 065
  3. KISQALI [Suspect]
     Active Substance: RIBOCICLIB
     Dosage: UNK
     Route: 065
     Dates: start: 20230913
  4. PURAN [Concomitant]
     Active Substance: LEVOTHYROXINE SODIUM
     Indication: Hormone replacement therapy
     Dosage: 1 DOSAGE FORM, QD (SANOFI, IN THE MORNING IN FASTING) (19 YEARS AGO)
     Route: 048
  5. ENALAPRIL [Concomitant]
     Active Substance: ENALAPRIL
     Indication: Hypertension
     Dosage: 1 DOSAGE FORM, QD (EMS, IN THE MORNING, 15 YEARS AGO))
     Route: 048
  6. PANTOPRAZOLE [Concomitant]
     Active Substance: PANTOPRAZOLE
     Indication: Antacid therapy
     Dosage: 1 DOSAGE FORM, QD (CIMED, IN THE MORNING) (19 YEARS AGO)
     Route: 048
  7. HYDROCHLOROTHIAZIDE [Concomitant]
     Active Substance: HYDROCHLOROTHIAZIDE
     Indication: Hypertension
     Dosage: 1 DOSAGE FORM, QD (IN THE MORNING, FROM 15 YEASR AGO)
     Route: 048
  8. BROMAZEPAM [Concomitant]
     Active Substance: BROMAZEPAM
     Indication: Sleep disorder
     Dosage: 1 DOSAGE FORM, QD (1 TABLET BEFORE GOING TO SLEEP, 4 MONTHS AGO, NEOQUIMICA)
     Route: 048

REACTIONS (14)
  - Pulmonary oedema [Not Recovered/Not Resolved]
  - Syncope [Recovered/Resolved]
  - Pneumonia bacterial [Recovered/Resolved]
  - Abdominal pain upper [Recovered/Resolved]
  - Asthenia [Recovered/Resolved]
  - Nausea [Recovered/Resolved]
  - Vomiting [Recovered/Resolved]
  - Dyspnoea [Not Recovered/Not Resolved]
  - Cough [Not Recovered/Not Resolved]
  - Feeling abnormal [Unknown]
  - Stress [Recovering/Resolving]
  - Nosocomial infection [Unknown]
  - Swelling [Unknown]
  - Asthenia [Unknown]

NARRATIVE: CASE EVENT DATE: 20230101
